FAERS Safety Report 9243057 (Version 3)
Quarter: 2013Q3

REPORT INFORMATION
  Report Type: Spontaneous
  Country: DK (occurrence: DK)
  Receive Date: 20130419
  Receipt Date: 20130827
  Transmission Date: 20140515
  Serious: Yes (Death, Life-Threatening, Other)
  Sender: FDA-Public Use
  Company Number: DK-ELI_LILLY_AND_COMPANY-DK201304003676

PATIENT
  Age: 40 Year
  Sex: Male
  Weight: 112 kg

DRUGS (6)
  1. ZYPREXA [Suspect]
     Indication: PSYCHOTIC DISORDER
     Dosage: 40 MG, UNKNOWN
     Route: 048
     Dates: start: 20130114
  2. METHADONE [Interacting]
     Dosage: UNK MG, UNK
  3. IMOCLONE [Interacting]
     Indication: INSOMNIA
     Dosage: 7.5 MG, UNK
     Dates: start: 20130113
  4. CHLORDIAZEPOXIDE [Interacting]
     Dosage: 100 MG, UNKNOWN
     Dates: start: 20130118, end: 20130119
  5. RIVOTRIL [Concomitant]
     Indication: EPILEPSY
     Dosage: 2 MG, UNK
     Dates: start: 20130114, end: 20130118
  6. METFORMIN [Concomitant]
     Indication: DIABETES MELLITUS
     Dosage: 200 MG, UNK
     Dates: start: 20130113

REACTIONS (11)
  - Toxicity to various agents [Fatal]
  - Cardiac arrest [Fatal]
  - Dyspnoea [Fatal]
  - Vomiting [Fatal]
  - Substance abuse [Fatal]
  - Convulsion [Fatal]
  - Myocardial infarction [Unknown]
  - Heart rate increased [Unknown]
  - Blood potassium increased [Unknown]
  - Drug interaction [Unknown]
  - Prescribed overdose [Unknown]
